FAERS Safety Report 8234265-5 (Version None)
Quarter: 2012Q1

REPORT INFORMATION
  Report Type: 
  Country: None (occurrence: None)
  Receive Date: 20120326
  Receipt Date: 20120322
  Transmission Date: 20120608
  Serious: Yes (Other)
  Sender: FDA-Public Use
  Company Number: US-PFIZER INC-2012075543

PATIENT
  Age: 80 Year
  Sex: Female

DRUGS (2)
  1. ADVIL PM [Suspect]
     Indication: INSOMNIA
  2. ADVIL PM [Suspect]
     Indication: PAIN
     Dosage: UNK

REACTIONS (5)
  - RESTLESSNESS [None]
  - EYE DISORDER [None]
  - FEELING ABNORMAL [None]
  - SENSATION OF HEAVINESS [None]
  - SLUGGISHNESS [None]
